FAERS Safety Report 6217359-5 (Version None)
Quarter: 2009Q2

REPORT INFORMATION
  Report Type: 
  Country: None (occurrence: None)
  Receive Date: 20090608
  Receipt Date: 20080808
  Transmission Date: 20091009
  Serious: No
  Sender: FDA-Public Use
  Company Number: A0741991A

PATIENT
  Sex: Female

DRUGS (4)
  1. WELLBUTRIN XL [Suspect]
     Indication: DRUG USE FOR UNKNOWN INDICATION
     Dosage: 900MG PER DAY
     Route: 048
  2. CITALOPRAM HYDROBROMIDE [Concomitant]
  3. ALBUTEROL [Concomitant]
     Route: 055
  4. ALPRAZOLAM [Concomitant]

REACTIONS (5)
  - ACCIDENTAL OVERDOSE [None]
  - ANXIETY [None]
  - NAUSEA [None]
  - TINNITUS [None]
  - TREMOR [None]
